FAERS Safety Report 12394622 (Version 1)
Quarter: 2016Q2

REPORT INFORMATION
  Report Type: Spontaneous
  Country: US (occurrence: US)
  Receive Date: 20160523
  Receipt Date: 20160523
  Transmission Date: 20160815
  Serious: Yes (Hospitalization, Other)
  Sender: FDA-Public Use
  Company Number: US-JUBILANT CADISTA PHARMACEUTICALS-2016JUB00185

PATIENT
  Age: 57 Year
  Sex: Male
  Weight: 70.75 kg

DRUGS (4)
  1. PREDNISONE. [Suspect]
     Active Substance: PREDNISONE
     Dosage: 10 MG, UNK
  2. TYVASO [Suspect]
     Active Substance: TREPROSTINIL
     Indication: PULMONARY HYPERTENSION
     Dosage: 18-54 MICROGRAMS (2-9 BREATHS) 4X/DAY
     Dates: start: 20160319
  3. PREDNISONE. [Suspect]
     Active Substance: PREDNISONE
     Indication: PULMONARY CONGESTION
     Dosage: UNK
     Dates: start: 201601
  4. TRACLEER [Concomitant]
     Active Substance: BOSENTAN

REACTIONS (4)
  - Weight decreased [Unknown]
  - Chronic obstructive pulmonary disease [Unknown]
  - Loss of consciousness [Unknown]
  - Dyspnoea [Unknown]

NARRATIVE: CASE EVENT DATE: 201602
